FAERS Safety Report 6218323-2 (Version None)
Quarter: 2009Q2

REPORT INFORMATION
  Report Type: 
  Country: None (occurrence: None)
  Receive Date: 20090608
  Receipt Date: 20090526
  Transmission Date: 20091009
  Serious: Yes (Death, Hospitalization)
  Sender: FDA-Public Use
  Company Number: A0730987A

PATIENT
  Age: 65 Year
  Sex: Male

DRUGS (13)
  1. AVANDIA [Suspect]
     Dosage: 8MG PER DAY
     Route: 048
     Dates: start: 20000101, end: 20061201
  2. VITAMIN [Concomitant]
  3. ASPIRIN [Concomitant]
  4. LORTAB [Concomitant]
  5. POTASSIUM CHLORIDE [Concomitant]
  6. MOUTH WASH [Concomitant]
  7. MULTI-VITAMINS [Concomitant]
  8. AVAPRO [Concomitant]
  9. GLUCOTROL [Concomitant]
  10. LODINE [Concomitant]
  11. COLACE [Concomitant]
  12. ASCORBIC ACID [Concomitant]
  13. DEMADEX [Concomitant]

REACTIONS (5)
  - ACUTE RESPIRATORY FAILURE [None]
  - CARDIAC FAILURE CONGESTIVE [None]
  - CARDIO-RESPIRATORY ARREST [None]
  - CORONARY ARTERY DISEASE [None]
  - PNEUMONIA [None]
